FAERS Safety Report 9801226 (Version 1)
Quarter: 2014Q1

REPORT INFORMATION
  Report Type: Spontaneous
  Country: US (occurrence: US)
  Receive Date: 20140107
  Receipt Date: 20140107
  Transmission Date: 20141002
  Serious: Yes (Death)
  Sender: FDA-Public Use
  Company Number: US-UCBSA-107732

PATIENT
  Age: 35 Year
  Sex: Male

DRUGS (5)
  1. ALPRAZOLAM [Suspect]
     Dosage: ROUTE: INGESTION+PARENTERAL
  2. HEROIN [Suspect]
     Dosage: ROUTE: INGESTION+PARENTERAL
  3. HYDROCODONE [Suspect]
     Dosage: ROUTE: INGESTION+PARENTERAL
  4. OXYCODONE [Suspect]
     Dosage: ROUTE: INGESTION+PARENTERAL
  5. HYDROXYZINE [Suspect]
     Dosage: ROUTE: INGESTION+PARENTERAL

REACTIONS (2)
  - Cardio-respiratory arrest [Fatal]
  - Toxicity to various agents [Fatal]
